FAERS Safety Report 5569948-9 (Version None)
Quarter: 2007Q4

REPORT INFORMATION
  Report Type: 
  Country: None (occurrence: None)
  Receive Date: 20071218
  Receipt Date: 20071130
  Transmission Date: 20080405
  Serious: Yes (Hospitalization)
  Sender: FDA-Public Use
  Company Number: DSA_30980_2007

PATIENT
  Sex: Female

DRUGS (3)
  1. TAVOR /0027321/ (TAVOR - LORAZEPAM) 1 MG [Suspect]
     Indication: DRUG USE FOR UNKNOWN INDICATION
     Dosage: 2 MG 2 MG ORAL
     Route: 048
  2. PAROXETINE [Suspect]
     Indication: DRUG USE FOR UNKNOWN INDICATION
     Dosage: 20 MG ORAL
     Route: 048
  3. TRAZODONE (TRAZODEONE) 100 MG [Suspect]
     Indication: DRUG USE FOR UNKNOWN INDICATION
     Dosage: 50 MG ORAL
     Route: 048

REACTIONS (2)
  - FATIGUE [None]
  - SYNCOPE [None]
